FAERS Safety Report 10048426 (Version 2)
Quarter: 2014Q1

REPORT INFORMATION
  Report Type: Spontaneous
  Country: US (occurrence: US)
  Receive Date: 20140331
  Receipt Date: 20140331
  Transmission Date: 20141002
  Serious: Yes (Other)
  Sender: FDA-Public Use
  Company Number: US-SA-2014SA035740

PATIENT
  Age: 71 Year
  Sex: Female

DRUGS (2)
  1. RENVELA [Suspect]
     Indication: HYPOPHOSPHATAEMIA
     Dosage: 6 TABLETS
     Route: 048
     Dates: end: 20140313
  2. CLONIDINE [Concomitant]
     Indication: HYPERTENSION

REACTIONS (6)
  - Abasia [Not Recovered/Not Resolved]
  - Malaise [Unknown]
  - Joint swelling [Not Recovered/Not Resolved]
  - Joint effusion [Not Recovered/Not Resolved]
  - Arthralgia [Not Recovered/Not Resolved]
  - Arthralgia [Not Recovered/Not Resolved]
